FAERS Safety Report 22093176 (Version 1)
Quarter: 2023Q1

REPORT INFORMATION
  Report Type: Report from Study
  Country: US (occurrence: US)
  Receive Date: 20230314
  Receipt Date: 20230314
  Transmission Date: 20230418
  Serious: Yes (Other)
  Sender: FDA-Public Use
  Company Number: US-GILEAD-2023-0619623

PATIENT
  Sex: Male

DRUGS (9)
  1. AZTREONAM LYSINE [Suspect]
     Active Substance: AZTREONAM LYSINE
     Indication: Cystic fibrosis
     Dosage: 75MG RECONSTITUTE WITH 1ML SUPPLIED DILUENT + NEBULIZE 75 MG 3 TIMES DAILY FOR 14 DAYS ON, 14 DAYS O
     Route: 055
  2. AZTREONAM LYSINE [Suspect]
     Active Substance: AZTREONAM LYSINE
     Indication: Pseudomonas infection
  3. BUDESONIDE [Concomitant]
     Active Substance: BUDESONIDE
  4. METOPROLOL TARTRATE [Concomitant]
     Active Substance: METOPROLOL TARTRATE
  5. SODIUM CHLORIDE [Concomitant]
     Active Substance: SODIUM CHLORIDE
  6. ATROPINE SULFATE [Concomitant]
     Active Substance: ATROPINE SULFATE
  7. LEVALBUTEROL [Concomitant]
     Active Substance: LEVALBUTEROL
  8. TOBRAMYCIN [Concomitant]
     Active Substance: TOBRAMYCIN
  9. MIRALAX [Concomitant]
     Active Substance: POLYETHYLENE GLYCOL 3350

REACTIONS (2)
  - Neurogenic bladder [Unknown]
  - Off label use [Unknown]
